FAERS Safety Report 6227707-8 (Version None)
Quarter: 2009Q2

REPORT INFORMATION
  Report Type: 
  Country: None (occurrence: None)
  Receive Date: 20090612
  Receipt Date: 20090528
  Transmission Date: 20091009
  Serious: Yes (Death)
  Sender: FDA-Public Use
  Company Number: US-GILEAD-2009-0022275

PATIENT
  Sex: Female
  Weight: 53.572 kg

DRUGS (10)
  1. LETAIRIS [Suspect]
     Indication: PULMONARY ARTERIAL HYPERTENSION
     Route: 048
     Dates: start: 20080801
  2. NORVASC [Concomitant]
  3. LORESSOR [Concomitant]
  4. METOCLOPRAMIDE [Concomitant]
  5. PRINIVIL [Concomitant]
  6. METRONIDAZOLE [Concomitant]
  7. RENAGEL [Concomitant]
  8. PRILOSEC [Concomitant]
  9. NEPHROCAPS [Concomitant]
  10. FOLIC ACID [Concomitant]

REACTIONS (1)
  - DEATH [None]
